FAERS Safety Report 7564353-8 (Version None)
Quarter: 2011Q2

REPORT INFORMATION
  Report Type: 
  Country: None (occurrence: None)
  Receive Date: 20110622
  Receipt Date: 20110609
  Transmission Date: 20111010
  Serious: Yes (Other)
  Sender: FDA-Public Use
  Company Number: PHHY2011DE51898

PATIENT
  Age: 81 Year
  Sex: Female

DRUGS (2)
  1. IBANDRONATE SODIUM [Suspect]
     Route: 042
     Dates: start: 20021001, end: 20040801
  2. ZOMETA [Suspect]
     Route: 042
     Dates: start: 20040801, end: 20050111

REACTIONS (1)
  - OSTEONECROSIS OF JAW [None]
